FAERS Safety Report 23961470 (Version 1)
Quarter: 2024Q2

REPORT INFORMATION
  Report Type: Spontaneous
  Country: FR (occurrence: FR)
  Receive Date: 20240611
  Receipt Date: 20240611
  Transmission Date: 20240716
  Serious: Yes (Life-Threatening)
  Sender: FDA-Public Use
  Company Number: None

PATIENT
  Age: 65 Year
  Sex: Female

DRUGS (1)
  1. METFORMIN [Suspect]
     Active Substance: METFORMIN HYDROCHLORIDE
     Indication: Type 2 diabetes mellitus
     Dosage: 1 G 3 TIMES / DAY
     Route: 048
     Dates: end: 20240517

REACTIONS (2)
  - Lactic acidosis [Recovering/Resolving]
  - Drug level increased [Recovered/Resolved]

NARRATIVE: CASE EVENT DATE: 20240516
